FAERS Safety Report 6905150-3 (Version None)
Quarter: 2010Q3

REPORT INFORMATION
  Report Type: 
  Country: None (occurrence: None)
  Receive Date: 20100804
  Receipt Date: 20091106
  Transmission Date: 20110219
  Serious: Yes (Other)
  Sender: FDA-Public Use
  Company Number: US-PFIZER INC-2008062352

PATIENT
  Sex: Female
  Weight: 63.492 kg

DRUGS (4)
  1. LYRICA [Suspect]
     Indication: NEURALGIA
     Dosage: 300 MG, UNK
     Route: 048
     Dates: start: 20080101, end: 20080101
  2. DIAZEPAM [Concomitant]
     Dosage: UNK
  3. TYLENOL W/ CODEINE NO. 3 [Concomitant]
     Dosage: UNK
  4. ACETAMINOPHEN AND HYDROCODONE BITARTRATE [Concomitant]
     Dosage: 10/650

REACTIONS (16)
  - DRY MOUTH [None]
  - DYSPNOEA [None]
  - GAIT DISTURBANCE [None]
  - GINGIVAL SWELLING [None]
  - GLOSSODYNIA [None]
  - HYPERPHAGIA [None]
  - HYPOVENTILATION [None]
  - INFLUENZA LIKE ILLNESS [None]
  - LIP SWELLING [None]
  - MOUTH ULCERATION [None]
  - OEDEMA MOUTH [None]
  - ORAL PAIN [None]
  - PHARYNGEAL OEDEMA [None]
  - SOMNOLENCE [None]
  - SWOLLEN TONGUE [None]
  - VISION BLURRED [None]
